FAERS Safety Report 19887424 (Version 1)
Quarter: 2021Q3

REPORT INFORMATION
  Report Type: Spontaneous
  Country: US (occurrence: US)
  Receive Date: 20210928
  Receipt Date: 20210928
  Transmission Date: 20211014
  Serious: Yes (Death)
  Sender: FDA-Public Use
  Company Number: US-CELLTRION INC.-2021US012017

PATIENT

DRUGS (2)
  1. HERZUMA [Suspect]
     Active Substance: TRASTUZUMAB-PKRB
     Indication: BREAST MASS
  2. HERZUMA [Suspect]
     Active Substance: TRASTUZUMAB-PKRB
     Indication: METASTASES TO LIVER
     Dosage: 472.5 MG (ONCE EVERY 3 WEEKS)
     Route: 065
     Dates: start: 20210818

REACTIONS (2)
  - Death [Fatal]
  - Off label use [Unknown]
